FAERS Safety Report 24000530 (Version 1)
Quarter: 2024Q2

REPORT INFORMATION
  Report Type: Spontaneous
  Country: US (occurrence: None)
  Receive Date: 20240621
  Receipt Date: 20240621
  Transmission Date: 20240716
  Serious: Yes (Hospitalization)
  Sender: FDA-Public Use
  Company Number: None

PATIENT
  Sex: Male

DRUGS (4)
  1. VIGABATRIN [Suspect]
     Active Substance: VIGABATRIN
     Indication: Lennox-Gastaut syndrome
     Dosage: FREQUENCY : TWICE A DAY;?OTHER ROUTE : GTUBE;?
     Route: 050
  2. BACLOFEN [Concomitant]
     Active Substance: BACLOFEN
  3. CLOBAZAM [Concomitant]
     Active Substance: CLOBAZAM
  4. SODIUM ACETATE [Concomitant]
     Active Substance: SODIUM ACETATE

REACTIONS (5)
  - Antibiotic therapy [None]
  - Therapy interrupted [None]
  - Speech disorder [None]
  - Gait disturbance [None]
  - Loss of personal independence in daily activities [None]
